FAERS Safety Report 8348817-5 (Version None)
Quarter: 2012Q2

REPORT INFORMATION
  Report Type: 
  Country: None (occurrence: None)
  Receive Date: 20120508
  Receipt Date: 20120508
  Transmission Date: 20120825
  Serious: Yes (Other)
  Sender: FDA-Public Use
  Company Number: 001201764A

PATIENT
  Age: 20 Year
  Sex: Male

DRUGS (1)
  1. PROACTIV [Suspect]
     Indication: ACNE
     Dosage: 2 DOSES DERMALLY
     Dates: start: 20120310, end: 20120311

REACTIONS (4)
  - BURNING SENSATION [None]
  - URTICARIA [None]
  - HYPERSENSITIVITY [None]
  - ERYTHEMA [None]
